FAERS Safety Report 21786140 (Version 1)
Quarter: 2022Q4

REPORT INFORMATION
  Report Type: Spontaneous
  Country: AU (occurrence: AU)
  Receive Date: 20221228
  Receipt Date: 20221228
  Transmission Date: 20230113
  Serious: Yes (Hospitalization)
  Sender: FDA-Public Use
  Company Number: AU-CELLTRION INC.-2022AU021722

PATIENT

DRUGS (11)
  1. INFLECTRA [Suspect]
     Active Substance: INFLIXIMAB-DYYB
     Indication: Colitis ulcerative
     Dosage: 10MG/KG, Q4W
  2. Cartia [Concomitant]
     Dosage: UNK
  3. CANDESARTAN [Concomitant]
     Active Substance: CANDESARTAN
     Dosage: 16 MG
  4. ALENDRONATE SODIUM\CHOLECALCIFEROL [Concomitant]
     Active Substance: ALENDRONATE SODIUM\CHOLECALCIFEROL
     Dosage: 70MG/140MCG
  5. FOLATE SODIUM [Concomitant]
     Active Substance: FOLATE SODIUM
     Dosage: 6 DAYS A WEEK
  6. Cortiment [Concomitant]
     Dosage: 9 MG, DAILY
  7. METHOTREXATE SODIUM [Concomitant]
     Active Substance: METHOTREXATE SODIUM
     Dosage: 20 MG
     Dates: start: 20220602
  8. METHOTREXATE SODIUM [Concomitant]
     Active Substance: METHOTREXATE SODIUM
     Dosage: 10 UNK
  9. Salofalk [Concomitant]
     Dosage: UNK
  10. NORMAFIBE [Concomitant]
     Dosage: IN AM
  11. Salofalk [Concomitant]
     Dosage: 3 G, DAILY

REACTIONS (4)
  - Condition aggravated [Unknown]
  - Tachycardia [Unknown]
  - Pyrexia [Unknown]
  - Off label use [Unknown]

NARRATIVE: CASE EVENT DATE: 20221215
